FAERS Safety Report 7512322-6 (Version None)
Quarter: 2011Q2

REPORT INFORMATION
  Report Type: 
  Country: None (occurrence: None)
  Receive Date: 20110531
  Receipt Date: 20110526
  Transmission Date: 20111010
  Serious: Yes (Death, Hospitalization, Other)
  Sender: FDA-Public Use
  Company Number: PHHO2011US01770

PATIENT
  Sex: Female
  Weight: 66 kg

DRUGS (15)
  1. ALTACE [Concomitant]
  2. K-DUR [Concomitant]
  3. ATIVAN [Concomitant]
  4. COUMADIN [Concomitant]
  5. VALTREX [Concomitant]
  6. BENADRYL [Concomitant]
  7. ZANTAC [Concomitant]
  8. MEDROL [Concomitant]
  9. PEPCID [Concomitant]
  10. ACETAMINOPHEN [Concomitant]
  11. AFINITOR [Suspect]
     Indication: BREAST CANCER
     Dosage: 10 MG DAILY
     Route: 048
     Dates: start: 20101117, end: 20110105
  12. COMPAZINE [Concomitant]
  13. ZOFRAN [Concomitant]
  14. ALLEGRA [Concomitant]
  15. PYRIDOXINE HCL [Concomitant]

REACTIONS (16)
  - COUGH [None]
  - PULMONARY FIBROSIS [None]
  - SEPSIS [None]
  - RESPIRATORY FAILURE [None]
  - PNEUMOCYSTIS JIROVECI PNEUMONIA [None]
  - PYREXIA [None]
  - ACIDOSIS [None]
  - INTERSTITIAL LUNG DISEASE [None]
  - PNEUMONITIS [None]
  - HYPOTENSION [None]
  - OLIGURIA [None]
  - ACUTE RESPIRATORY DISTRESS SYNDROME [None]
  - DYSPNOEA [None]
  - PULMONARY EMBOLISM [None]
  - GASTROINTESTINAL HAEMORRHAGE [None]
  - CONCOMITANT DISEASE PROGRESSION [None]
